FAERS Safety Report 5692902-3 (Version None)
Quarter: 2008Q2

REPORT INFORMATION
  Report Type: 
  Country: None (occurrence: None)
  Receive Date: 20080327
  Receipt Date: 20080212
  Transmission Date: 20081010
  Serious: Yes (Other)
  Sender: FDA-Public Use
  Company Number: A03200800581

PATIENT
  Age: 35 Year
  Sex: Male

DRUGS (2)
  1. AMBIEN CR [Suspect]
     Indication: INSOMNIA
     Dosage: 2 DF ONCE - ORAL
     Route: 048
     Dates: start: 20080209, end: 20080209
  2. QUETIAPINE FUMARATE [Concomitant]

REACTIONS (5)
  - ABNORMAL BEHAVIOUR [None]
  - HALLUCINATION [None]
  - SLEEP TALKING [None]
  - SOMNAMBULISM [None]
  - THERAPY REGIMEN CHANGED [None]
